FAERS Safety Report 11155679 (Version 1)
Quarter: 2015Q2

REPORT INFORMATION
  Report Type: Spontaneous
  Country: US (occurrence: None)
  Receive Date: 20150601
  Receipt Date: 20150601
  Transmission Date: 20150821
  Serious: Yes (Hospitalization)
  Sender: FDA-Public Use
  Company Number: None

PATIENT
  Age: 68 Year
  Sex: Male
  Weight: 94 kg

DRUGS (2)
  1. METHOTREXATE [Suspect]
     Active Substance: METHOTREXATE
     Indication: NEOPLASM MALIGNANT
     Dosage: OTHER
     Dates: start: 20150406, end: 20150406
  2. CYCLOPHOSPHAMIDE. [Suspect]
     Active Substance: CYCLOPHOSPHAMIDE
     Indication: NEOPLASM MALIGNANT
     Route: 042
     Dates: start: 20150405, end: 20150405

REACTIONS (8)
  - Odynophagia [None]
  - Mucosal inflammation [None]
  - Lip exfoliation [None]
  - Nausea [None]
  - Anaemia [None]
  - Thrombocytopenia [None]
  - Febrile neutropenia [None]
  - Vomiting [None]

NARRATIVE: CASE EVENT DATE: 20150406
